FAERS Safety Report 19455124 (Version 1)
Quarter: 2021Q2

REPORT INFORMATION
  Report Type: Spontaneous
  Country: US (occurrence: US)
  Receive Date: 20210623
  Receipt Date: 20210623
  Transmission Date: 20210717
  Serious: Yes (Other)
  Sender: FDA-Public Use
  Company Number: US-REGENERON PHARMACEUTICALS, INC.-2021-60620

PATIENT

DRUGS (2)
  1. EYLEA [Suspect]
     Active Substance: AFLIBERCEPT
     Indication: NEOVASCULAR AGE-RELATED MACULAR DEGENERATION
     Dosage: 2 MG, UNK, LEFT EYE
     Route: 031
     Dates: start: 20190821
  2. EYLEA [Suspect]
     Active Substance: AFLIBERCEPT
     Indication: CHOROIDAL NEOVASCULARISATION
     Dosage: 2 MG, UNK, LEFT EYE
     Route: 031
     Dates: start: 20210609

REACTIONS (3)
  - Blindness [Unknown]
  - Endophthalmitis [Not Recovered/Not Resolved]
  - Vitrectomy [Unknown]

NARRATIVE: CASE EVENT DATE: 20210611
